FAERS Safety Report 9850116 (Version 1)
Quarter: 2014Q1

REPORT INFORMATION
  Report Type: Spontaneous
  Country: US (occurrence: None)
  Receive Date: 20140127
  Receipt Date: 20140127
  Transmission Date: 20141002
  Serious: Yes (Other)
  Sender: FDA-Public Use
  Company Number: None

PATIENT
  Age: 82 Year
  Sex: Male
  Weight: 103.8 kg

DRUGS (2)
  1. BEVACIZUMAB(RHUMAB VEGF) [Suspect]
  2. PREMETREXED(ALIMTA, LY23154) [Suspect]

REACTIONS (2)
  - Dyspnoea [None]
  - Pleural effusion [None]
